FAERS Safety Report 10164974 (Version 1)
Quarter: 2014Q2

REPORT INFORMATION
  Report Type: Spontaneous
  Country: US (occurrence: US)
  Receive Date: 20140510
  Receipt Date: 20140510
  Transmission Date: 20141212
  Serious: No
  Sender: FDA-Public Use
  Company Number: US-BRISTOL-MYERS SQUIBB COMPANY-19646785

PATIENT
  Age: 58 Year
  Sex: Male

DRUGS (8)
  1. BYDUREON [Suspect]
     Dates: start: 2013
  2. MAXIDEX [Concomitant]
  3. METFORMIN [Concomitant]
  4. RITALIN [Concomitant]
  5. JANUVIA [Concomitant]
  6. SIMVASTATIN [Concomitant]
  7. PRILOSEC [Concomitant]
  8. ASPIRIN [Concomitant]

REACTIONS (2)
  - Nausea [Unknown]
  - Vomiting [Unknown]
